FAERS Safety Report 9447609 (Version 1)
Quarter: 2013Q3

REPORT INFORMATION
  Report Type: Report from Study
  Country: US (occurrence: US)
  Receive Date: 20130808
  Receipt Date: 20130808
  Transmission Date: 20140515
  Serious: Yes (Other)
  Sender: FDA-Public Use
  Company Number: US-UCBSA-069535

PATIENT
  Age: 36 Year
  Sex: Female
  Weight: 90.26 kg

DRUGS (8)
  1. CIMZIA [Suspect]
     Indication: CROHN^S DISEASE
     Dates: start: 20100821
  2. CIMZIA [Suspect]
     Indication: CROHN^S DISEASE
     Dates: start: 20100104, end: 20100809
  3. ALBUTEROL [Concomitant]
  4. AMBIEN [Concomitant]
  5. IBUPROFEN [Concomitant]
     Indication: CROHN^S DISEASE
  6. REMICADE [Concomitant]
     Dates: start: 200709, end: 20091119
  7. REMICADE [Concomitant]
     Dates: start: 20101011
  8. VITAMIN B-12 [Concomitant]

REACTIONS (3)
  - Caesarean section [Unknown]
  - Pregnancy [Recovered/Resolved]
  - Breast feeding [Recovered/Resolved]
